FAERS Safety Report 4562554-4 (Version None)
Quarter: 2005Q1

REPORT INFORMATION
  Report Type: 
  Country: None (occurrence: None)
  Receive Date: 20050127
  Receipt Date: 20041109
  Transmission Date: 20050727
  Serious: Yes (Life-Threatening, Hospitalization, Disabling)
  Sender: FDA-Public Use
  Company Number: DE-MERCK-0411DEU00206

PATIENT
  Age: 68 Year
  Sex: Female
  Weight: 81 kg

DRUGS (6)
  1. VIOXX [Suspect]
     Indication: POLYARTHRITIS
     Route: 048
     Dates: start: 20000101, end: 20011001
  2. VIOXX [Suspect]
     Route: 048
     Dates: start: 20030902, end: 20041001
  3. VIOXX [Suspect]
     Indication: FIBROMYALGIA
     Route: 048
     Dates: start: 20000101, end: 20011001
  4. VIOXX [Suspect]
     Route: 048
     Dates: start: 20030902, end: 20041001
  5. CELECOXIB [Concomitant]
     Route: 048
     Dates: start: 20011025, end: 20030801
  6. [THERAPY UNSPECIFIED] [Concomitant]
     Route: 065

REACTIONS (6)
  - EPIGASTRIC DISCOMFORT [None]
  - EXERCISE TOLERANCE DECREASED [None]
  - HAEMATOMA [None]
  - HAEMOGLOBIN DECREASED [None]
  - MYOCARDIAL INFARCTION [None]
  - RENAL DISORDER [None]
